FAERS Safety Report 14196643 (Version 1)
Quarter: 2017Q4

REPORT INFORMATION
  Report Type: Spontaneous
  Country: FR (occurrence: FR)
  Receive Date: 20171116
  Receipt Date: 20171116
  Transmission Date: 20180321
  Serious: Yes (Other)
  Sender: FDA-Public Use
  Company Number: FR-MERCK KGAA-2034389

PATIENT
  Age: 49 Year
  Sex: Male

DRUGS (2)
  1. NOVOTHYROX [Suspect]
     Active Substance: LEVOTHYROXINE SODIUM
     Indication: AUTOIMMUNE THYROIDITIS
     Route: 048
     Dates: start: 201708
  2. LEVOTHYROXINE SODIUM. [Suspect]
     Active Substance: LEVOTHYROXINE SODIUM
     Route: 048
     Dates: start: 201708

REACTIONS (8)
  - Feeling drunk [None]
  - Blood thyroid stimulating hormone decreased [None]
  - Thinking abnormal [None]
  - Palpitations [None]
  - Thyroxine increased [None]
  - Headache [None]
  - Arrhythmia [None]
  - Visual impairment [None]

NARRATIVE: CASE EVENT DATE: 201708
